FAERS Safety Report 7829763-X (Version None)
Quarter: 2011Q4

REPORT INFORMATION
  Report Type: 
  Country: None (occurrence: None)
  Receive Date: 20111018
  Receipt Date: 20110920
  Transmission Date: 20120403
  Serious: Yes (Death, Hospitalization)
  Sender: FDA-Public Use
  Company Number: REG_2011_256

PATIENT
  Age: 19 Year
  Sex: Male

DRUGS (2)
  1. REGLAN [Suspect]
     Indication: GASTRIC ULCER
     Dosage: (DF ORAL)
     Route: 048
     Dates: start: 20080612, end: 20080621
  2. REGLAN [Suspect]
     Indication: GASTRITIS
     Dosage: (DF ORAL)
     Route: 048
     Dates: start: 20080612, end: 20080621

REACTIONS (9)
  - MENTAL IMPAIRMENT [None]
  - EXTRAPYRAMIDAL DISORDER [None]
  - AKATHISIA [None]
  - DEPRESSION [None]
  - SUICIDAL IDEATION [None]
  - GUN SHOT WOUND [None]
  - AGITATION [None]
  - HALLUCINATION [None]
  - COMPLETED SUICIDE [None]
